FAERS Safety Report 8991996 (Version 1)
Quarter: 2012Q4

REPORT INFORMATION
  Report Type: 
  Country: VN (occurrence: VN)
  Receive Date: 20121231
  Receipt Date: 20121231
  Transmission Date: 20130627
  Serious: Yes (Death)
  Sender: FDA-Public Use
  Company Number: PHHY2012VN121103

PATIENT
  Age: 50 Year
  Sex: Male
  Weight: 49 kg

DRUGS (5)
  1. NEORAL [Suspect]
     Indication: HEART TRANSPLANT
     Dosage: 200 mg, UNK
     Route: 048
     Dates: start: 20100617
  2. CELLCEPT [Suspect]
     Indication: HEART TRANSPLANT
     Dosage: 1000 mg, UNK
     Route: 048
     Dates: start: 20100617
  3. PREDNISOLON [Suspect]
     Indication: HEART TRANSPLANT
     Dosage: 5 mg, UNK
     Route: 048
     Dates: start: 20100617
  4. COVERSYL [Concomitant]
     Indication: HEART TRANSPLANT
  5. PLAVIX [Concomitant]
     Indication: HEART TRANSPLANT

REACTIONS (1)
  - Acute coronary syndrome [Fatal]
